FAERS Safety Report 24005714 (Version 2)
Quarter: 2024Q4

REPORT INFORMATION
  Report Type: Spontaneous
  Country: CZ (occurrence: CZ)
  Receive Date: 20240624
  Receipt Date: 20241119
  Transmission Date: 20250114
  Serious: Yes (Other)
  Sender: TEVA
  Company Number: CZ-TEVA-VS-3211094

PATIENT
  Age: 68 Year
  Sex: Female

DRUGS (5)
  1. PACLITAXEL [Suspect]
     Active Substance: PACLITAXEL
     Indication: Ductal adenocarcinoma of pancreas
     Dosage: NAB PAKLITAXEL
     Route: 065
  2. LEUCOVORIN [Suspect]
     Active Substance: LEUCOVORIN\LEUCOVORIN CALCIUM
     Indication: Ductal adenocarcinoma of pancreas
     Route: 065
     Dates: start: 202305
  3. GEMCITABINE [Concomitant]
     Active Substance: GEMCITABINE
     Indication: Ductal adenocarcinoma of pancreas
  4. IRINOTECAN SUCROSOFATE [Suspect]
     Active Substance: IRINOTECAN SUCROSOFATE
     Indication: Ductal adenocarcinoma of pancreas
     Dosage: ONIVYDE (LIPOSOMAL IRINOTECAN)
     Route: 065
     Dates: start: 202305
  5. FLUOROURACIL [Suspect]
     Active Substance: FLUOROURACIL
     Indication: Ductal adenocarcinoma of pancreas
     Dosage: 5 FU
     Route: 065
     Dates: start: 202305

REACTIONS (5)
  - Leukopenia [Recovered/Resolved]
  - Alopecia [Unknown]
  - Dehydration [Recovered/Resolved]
  - Fatigue [Recovered/Resolved]
  - Diarrhoea [Recovered/Resolved]
